FAERS Safety Report 21968245 (Version 1)
Quarter: 2023Q1

REPORT INFORMATION
  Report Type: Spontaneous
  Country: DE (occurrence: DE)
  Receive Date: 20230208
  Receipt Date: 20230208
  Transmission Date: 20230418
  Serious: Yes (Life-Threatening, Hospitalization)
  Sender: FDA-Public Use
  Company Number: DE-TEVA-2023-DE-2852681

PATIENT
  Age: 14 Year

DRUGS (4)
  1. MELPERONE [Interacting]
     Active Substance: MELPERONE
     Indication: Intellectual disability
     Route: 065
  2. LAMOTRIGINE [Interacting]
     Active Substance: LAMOTRIGINE
     Indication: Intellectual disability
     Route: 065
  3. ZUCLOPENTHIXOL [Interacting]
     Active Substance: ZUCLOPENTHIXOL
     Indication: Intellectual disability
     Route: 065
  4. TIAPRIDE [Interacting]
     Active Substance: TIAPRIDE
     Indication: Intellectual disability
     Route: 065

REACTIONS (3)
  - Aplastic anaemia [Unknown]
  - Drug interaction [Unknown]
  - Off label use [Unknown]
